FAERS Safety Report 7931245-1 (Version None)
Quarter: 2011Q4

REPORT INFORMATION
  Report Type: 
  Country: None (occurrence: None)
  Receive Date: 20111121
  Receipt Date: 20111111
  Transmission Date: 20120403
  Serious: Yes (Other)
  Sender: FDA-Public Use
  Company Number: US-BAYER-2011-109427

PATIENT
  Sex: Female

DRUGS (1)
  1. MIRENA [Suspect]
     Indication: CONTRACEPTION
     Dosage: 20 ?G, CONT
     Route: 015
     Dates: start: 20060901, end: 20110530

REACTIONS (3)
  - INFERTILITY FEMALE [None]
  - PREMATURE MENOPAUSE [None]
  - BLOOD FOLLICLE STIMULATING HORMONE ABNORMAL [None]
